FAERS Safety Report 20116924 (Version 1)
Quarter: 2021Q4

REPORT INFORMATION
  Report Type: Spontaneous
  Country: US (occurrence: US)
  Receive Date: 20211126
  Receipt Date: 20211126
  Transmission Date: 20220303
  Serious: No
  Sender: FDA-Public Use
  Company Number: US-MLMSERVICE-20210105-2655762-1

PATIENT
  Sex: Male

DRUGS (4)
  1. MORPHINE SULFATE [Suspect]
     Active Substance: MORPHINE SULFATE
     Indication: COVID-19
     Dosage: UNK
     Route: 065
     Dates: start: 202004
  2. HYDROXYCHLOROQUINE [Concomitant]
     Active Substance: HYDROXYCHLOROQUINE
     Indication: COVID-19
     Dates: start: 202004
  3. OXYGEN [Concomitant]
     Active Substance: OXYGEN
     Indication: Oxygen therapy
     Dosage: 3 L, UNK [REQUIRES 3 TO 4 L OF CONTINUOUS OXYGEN]
     Route: 045
     Dates: start: 202004
  4. OXYGEN [Concomitant]
     Active Substance: OXYGEN
     Dosage: 4 L, UNK [REQUIRES 3 TO 4 L OF CONTINUOUS OXYGEN]
     Route: 045
     Dates: start: 202004

REACTIONS (1)
  - Constipation [Unknown]

NARRATIVE: CASE EVENT DATE: 20200401
